FAERS Safety Report 23805963 (Version 1)
Quarter: 2024Q2

REPORT INFORMATION
  Report Type: Spontaneous
  Country: US (occurrence: US)
  Receive Date: 20240502
  Receipt Date: 20240502
  Transmission Date: 20240716
  Serious: No
  Sender: FDA-Public Use
  Company Number: US-OPELLA-2024OHG013997

PATIENT

DRUGS (1)
  1. ASPERCREME WITH LIDOCAINE PAIN RELIEVING CREME [Suspect]
     Active Substance: LIDOCAINE HYDROCHLORIDE
     Indication: Pain

REACTIONS (2)
  - Therapeutic response decreased [Unknown]
  - No adverse event [Unknown]
